FAERS Safety Report 21168967 (Version 2)
Quarter: 2022Q3

REPORT INFORMATION
  Report Type: Report from Study
  Country: CN (occurrence: None)
  Receive Date: 20220803
  Receipt Date: 20220813
  Transmission Date: 20221026
  Serious: Yes (Life-Threatening, Hospitalization)
  Sender: FDA-Public Use
  Company Number: CN-ROCHE-3097820

PATIENT
  Age: 68 Year
  Sex: Male
  Weight: 58 kg

DRUGS (16)
  1. ATEZOLIZUMAB [Suspect]
     Active Substance: ATEZOLIZUMAB
     Indication: Small cell lung cancer extensive stage
     Dosage: MOST RECENT DOSE WAS RECEIVED PRIOR TO SAE ONSET ON 14/APR/2022. AGAIN GIVEN ON 19/MAY/2022?INTERUPT
     Route: 042
     Dates: start: 20220228, end: 20220513
  2. CISPLATIN [Suspect]
     Active Substance: CISPLATIN
     Indication: Small cell lung cancer extensive stage
     Dosage: MOST RECENT DOSE OF 39 MG WAS RECEIVED PRIOR TO SAE ONSET ON 16/APR/2022. AGAIN GIVEN ON 19/MAY/2022
     Route: 042
     Dates: start: 20220228, end: 20220513
  3. ETOPOSIDE [Suspect]
     Active Substance: ETOPOSIDE
     Indication: Small cell lung cancer extensive stage
     Dosage: MOST RECENT DOSE OF 158 MG WAS RECEIVED PRIOR TO SAE ONSET ON 16/APR/2022, AGAIN GIVEN ON 19/MAY/202
     Route: 042
     Dates: start: 20220228, end: 20220513
  4. LEVAMLODIPINE BESYLATE [Concomitant]
     Active Substance: LEVAMLODIPINE BESYLATE
     Dates: start: 2014
  5. METOPROLOL TARTRATE [Concomitant]
     Active Substance: METOPROLOL TARTRATE
     Dates: start: 2014
  6. ROSIGLITAZONE HYDROCHLORIDE [Concomitant]
     Active Substance: ROSIGLITAZONE HYDROCHLORIDE
     Dates: start: 2018
  7. CANAGLIFLOZIN [Concomitant]
     Active Substance: CANAGLIFLOZIN
     Dates: start: 2018
  8. AMBROXOL HYDROCHLORIDE [Concomitant]
     Active Substance: AMBROXOL HYDROCHLORIDE
     Dates: start: 20220523, end: 20220614
  9. IPRATROPIUM BROMIDE [Concomitant]
     Active Substance: IPRATROPIUM BROMIDE
     Dates: start: 20220523, end: 20220614
  10. OMEPRAZOLE SODIUM [Concomitant]
     Active Substance: OMEPRAZOLE SODIUM
     Dates: start: 20220523, end: 20220614
  11. POTASSIUM CHLORIDE [Concomitant]
     Active Substance: POTASSIUM CHLORIDE
     Dates: start: 20220528, end: 20220606
  12. SULFAMETHOXAZOLE [Concomitant]
     Active Substance: SULFAMETHOXAZOLE
     Dosage: 1 TABLET
     Dates: start: 20220529, end: 20220709
  13. ATORVASTATIN CALCIUM [Concomitant]
     Active Substance: ATORVASTATIN CALCIUM
     Dosage: 1 TABLET
     Dates: start: 20220530, end: 20220615
  14. THROMBOPOIETIN [Concomitant]
     Active Substance: THROMBOPOIETIN
     Dosage: 15000 U
     Dates: start: 20220530, end: 20220604
  15. METHYLPREDNISOLONE SODIUM SUCCINATE [Concomitant]
     Active Substance: METHYLPREDNISOLONE SODIUM SUCCINATE
     Dates: start: 20220601, end: 20220607
  16. MOXIFLOXACIN HYDROCHLORIDE [Concomitant]
     Active Substance: MOXIFLOXACIN HYDROCHLORIDE
     Dates: start: 20220601, end: 20220608

REACTIONS (6)
  - Immune-mediated lung disease [Not Recovered/Not Resolved]
  - Respiratory failure [Not Recovered/Not Resolved]
  - Pneumonia [Not Recovered/Not Resolved]
  - Platelet count decreased [Recovering/Resolving]
  - Hyperglycaemia [Not Recovered/Not Resolved]
  - Dyspnoea [Not Recovered/Not Resolved]

NARRATIVE: CASE EVENT DATE: 20220513
